FAERS Safety Report 4493990-2 (Version None)
Quarter: 2004Q4

REPORT INFORMATION
  Report Type: 
  Country: None (occurrence: None)
  Receive Date: 20041104
  Receipt Date: 20041104
  Transmission Date: 20050328
  Serious: Yes (Life-Threatening, Hospitalization)
  Sender: FDA-Public Use
  Company Number: None

PATIENT
  Age: 69 Year
  Sex: Male
  Weight: 78.4723 kg

DRUGS (1)
  1. MIDAZOLAM [Suspect]
     Indication: SEDATIVE THERAPY
     Dosage: 1MG   ONCE  INTRAVENOU
     Route: 042
     Dates: start: 20041015, end: 20041015

REACTIONS (3)
  - BRADYCARDIA [None]
  - HYPOTENSION [None]
  - SOMNOLENCE [None]
